FAERS Safety Report 9139352 (Version 1)
Quarter: 2013Q1

REPORT INFORMATION
  Report Type: Spontaneous
  Country: US (occurrence: US)
  Receive Date: 20130305
  Receipt Date: 20130305
  Transmission Date: 20140127
  Serious: Yes (Other)
  Sender: FDA-Public Use
  Company Number: US-ELI_LILLY_AND_COMPANY-US201202006902

PATIENT
  Sex: Female

DRUGS (3)
  1. FORTEO [Suspect]
     Indication: OSTEOPOROSIS
     Dosage: 20 UG, QD
     Dates: start: 20120110
  2. FORTEO [Suspect]
     Dosage: 20 UG, QD
  3. FORTEO [Suspect]
     Dosage: 20 UG, QD
     Dates: end: 2012

REACTIONS (17)
  - Headache [Unknown]
  - Tremor [Unknown]
  - Palpitations [Unknown]
  - Hypotension [Unknown]
  - Dehydration [Unknown]
  - Musculoskeletal stiffness [Unknown]
  - Blood pressure abnormal [Unknown]
  - Cerebrovascular accident [Unknown]
  - Bone pain [Unknown]
  - Back pain [Unknown]
  - Hypoaesthesia [Unknown]
  - Fatigue [Unknown]
  - Pain [Not Recovered/Not Resolved]
  - Injection site bruising [Unknown]
  - Muscle spasms [Unknown]
  - Drug dose omission [Unknown]
  - Dysstasia [Unknown]
